FAERS Safety Report 9506575 (Version 2)
Quarter: 2014Q2

REPORT INFORMATION
  Report Type: Spontaneous
  Country: US (occurrence: US)
  Receive Date: 20130906
  Receipt Date: 20140506
  Transmission Date: 20141212
  Serious: Yes (Death)
  Sender: FDA-Public Use
  Company Number: US-EXELIXIS-CABO-13003208

PATIENT
  Age: 43 Year
  Sex: Female
  Weight: 54 kg

DRUGS (8)
  1. COMETRIQ [Suspect]
     Indication: THYROID CANCER
     Dosage: 60 MG, QD
     Route: 048
     Dates: start: 20130617, end: 20130703
  2. XANAX [Concomitant]
  3. PAXIL [Concomitant]
  4. AMIODARONE [Concomitant]
  5. DIGOXIN [Concomitant]
  6. POTASSIUM [Concomitant]
  7. HYDROCODONE [Concomitant]
  8. CALCIUM [Concomitant]

REACTIONS (1)
  - Malignant neoplasm progression [Fatal]
